FAERS Safety Report 9593315 (Version 1)
Quarter: 2013Q4

REPORT INFORMATION
  Report Type: Spontaneous
  Country: US (occurrence: US)
  Receive Date: 20131004
  Receipt Date: 20131004
  Transmission Date: 20140711
  Serious: No
  Sender: FDA-Public Use
  Company Number: US-ALEXION-A201301909

PATIENT
  Sex: Male
  Weight: 82.9 kg

DRUGS (6)
  1. SOLIRIS 300MG [Suspect]
     Indication: PAROXYSMAL NOCTURNAL HAEMOGLOBINURIA
     Dosage: 600 MG, QW
     Route: 042
     Dates: start: 20091216, end: 20100113
  2. SOLIRIS 300MG [Suspect]
     Dosage: 900 MG, Q2W
     Route: 042
     Dates: start: 20100113
  3. FOLIC ACID [Concomitant]
     Dosage: 1 MG, QD
  4. AMBIEN [Concomitant]
     Indication: INSOMNIA
     Dosage: 5 MG, PRN
  5. MUCINEX [Concomitant]
     Dosage: UNK, PRN
  6. MULTIVITAMIN [Concomitant]

REACTIONS (1)
  - Erectile dysfunction [Recovered/Resolved]
